FAERS Safety Report 12989577 (Version 1)
Quarter: 2016Q4

REPORT INFORMATION
  Report Type: Spontaneous
  Country: US (occurrence: US)
  Receive Date: 20161201
  Receipt Date: 20161201
  Transmission Date: 20170207
  Serious: No
  Sender: FDA-Public Use
  Company Number: US-PAR PHARMACEUTICAL, INC-2015SCPR014537

PATIENT

DRUGS (2)
  1. PROPAFENONE HCL ER [Suspect]
     Active Substance: PROPAFENONE
     Indication: ATRIAL FIBRILLATION
     Dosage: 1 DF, EVERY 12 HOURS
     Route: 048
     Dates: start: 20151115
  2. PROPAFENONE HCL ER [Suspect]
     Active Substance: PROPAFENONE
     Dosage: 1 DF, EVERY 12 HOURS
     Route: 048
     Dates: start: 201505

REACTIONS (3)
  - Drug ineffective [Not Recovered/Not Resolved]
  - Heart rate abnormal [Not Recovered/Not Resolved]
  - Product quality issue [Unknown]

NARRATIVE: CASE EVENT DATE: 20151115
